FAERS Safety Report 4947568-4 (Version None)
Quarter: 2006Q1

REPORT INFORMATION
  Report Type: 
  Country: None (occurrence: None)
  Receive Date: 20060320
  Receipt Date: 20060217
  Transmission Date: 20060701
  Serious: Yes (Hospitalization, Other)
  Sender: FDA-Public Use
  Company Number: PHHO2006US02946

PATIENT
  Age: 82 Year
  Sex: Female
  Weight: 80.9 kg

DRUGS (14)
  1. SYNTHROID [Concomitant]
     Dosage: UNK, UNK
  2. TOPROL-XL [Concomitant]
     Dosage: UNK, UNK
  3. EVISTA [Concomitant]
     Dosage: UNK, UNK
  4. MULTIVITAMIN [Concomitant]
     Dosage: 1 TAB, DAILY
  5. DIOVAN [Concomitant]
     Dosage: 160 UNK, QD
  6. VYTORIN [Concomitant]
     Dosage: 10-20 MG, DAILY
  7. IBUPROFEN [Concomitant]
  8. VITAMIN E [Concomitant]
  9. OMEGA 3 [Concomitant]
  10. COUMADIN [Concomitant]
  11. ZINC [Concomitant]
  12. ACLASTA [Suspect]
     Indication: OSTEOPOROSIS POSTMENOPAUSAL
     Dosage: 5 MG, ONCE YEARLY
     Route: 042
     Dates: start: 20060118
  13. CALCIUM GLUCONATE [Concomitant]
     Indication: OSTEOPOROSIS POSTMENOPAUSAL
  14. VITAMIN D [Concomitant]
     Indication: OSTEOPOROSIS POSTMENOPAUSAL

REACTIONS (17)
  - ABDOMINAL PAIN [None]
  - ABDOMINAL PAIN UPPER [None]
  - ACTIVATED PARTIAL THROMBOPLASTIN TIME PROLONGED [None]
  - AORTIC ARTERIOSCLEROSIS [None]
  - AORTIC VALVE INCOMPETENCE [None]
  - ATRIAL FIBRILLATION [None]
  - ATRIAL THROMBOSIS [None]
  - CHOLECYSTECTOMY [None]
  - CHOLECYSTITIS [None]
  - CHOLELITHIASIS [None]
  - DILATATION ATRIAL [None]
  - MYALGIA [None]
  - PAIN [None]
  - PAIN IN EXTREMITY [None]
  - PULMONARY VALVE INCOMPETENCE [None]
  - TRICUSPID VALVE INCOMPETENCE [None]
  - VENTRICULAR DYSFUNCTION [None]
